FAERS Safety Report 11717038 (Version 2)
Quarter: 2016Q1

REPORT INFORMATION
  Report Type: Spontaneous
  Country: US (occurrence: US)
  Receive Date: 20151109
  Receipt Date: 20160205
  Transmission Date: 20160525
  Serious: Yes (Hospitalization, Disabling, Other)
  Sender: FDA-Public Use
  Company Number: US-PFIZER INC-2015381677

PATIENT
  Age: 58 Year
  Sex: Male

DRUGS (4)
  1. HYDROCORTISONE. [Concomitant]
     Active Substance: HYDROCORTISONE
     Indication: PITUITARY TUMOUR
     Dosage: UNK
  2. DEPO-TESTOSTERONE [Suspect]
     Active Substance: TESTOSTERONE CYPIONATE
     Indication: HORMONE REPLACEMENT THERAPY
     Dosage: UNK (ONCE EVERY 2-3 WEEKS)
     Dates: end: 2009
  3. ANDROGEL [Suspect]
     Active Substance: TESTOSTERONE
     Indication: HORMONE REPLACEMENT THERAPY
     Dosage: UNK, DAILY (1 %)
     Dates: start: 2009, end: 2013
  4. TESTOSTERONE CIPIONATE [Suspect]
     Active Substance: TESTOSTERONE
     Indication: HORMONE REPLACEMENT THERAPY
     Dosage: UNK
     Dates: start: 1990

REACTIONS (2)
  - Amnesia [Not Recovered/Not Resolved]
  - Ischaemic stroke [Unknown]

NARRATIVE: CASE EVENT DATE: 2002
